FAERS Safety Report 6986610-6 (Version None)
Quarter: 2010Q3

REPORT INFORMATION
  Report Type: 
  Country: None (occurrence: None)
  Receive Date: 20100915
  Receipt Date: 20090721
  Transmission Date: 20110219
  Serious: No
  Sender: FDA-Public Use
  Company Number: US-WYE-H10249709

PATIENT
  Sex: Female
  Weight: 61.29 kg

DRUGS (3)
  1. PRISTIQ [Suspect]
     Indication: DEPRESSION
     Route: 048
     Dates: start: 20090101, end: 20090406
  2. PRISTIQ [Suspect]
     Dosage: ^DECIDED TO DISCONTINUE AND TAKING PRISTIQ EVERY 2-3 DAYS^
     Route: 048
     Dates: start: 20090411, end: 20090101
  3. PRISTIQ [Suspect]
     Dosage: ^1/2 50 MG TABLET EVERY 3 DAYS^
     Route: 048
     Dates: start: 20090101

REACTIONS (4)
  - DIZZINESS [None]
  - DRUG WITHDRAWAL SYNDROME [None]
  - INTENTIONAL DRUG MISUSE [None]
  - PALPITATIONS [None]
